FAERS Safety Report 24621367 (Version 4)
Quarter: 2025Q3

REPORT INFORMATION
  Report Type: Spontaneous
  Country: CA (occurrence: CA)
  Receive Date: 20241114
  Receipt Date: 20250812
  Transmission Date: 20251020
  Serious: Yes (Life-Threatening, Hospitalization, Disabling, Other)
  Sender: BRISTOL-MYERS SQUIBB COMPANY
  Company Number: CA-BRISTOL-MYERS SQUIBB COMPANY-2024-171345

PATIENT
  Age: 44 Year
  Sex: Female

DRUGS (724)
  1. ORENCIA [Suspect]
     Active Substance: ABATACEPT
     Indication: Rheumatoid arthritis
  2. ORENCIA [Suspect]
     Active Substance: ABATACEPT
     Route: 058
  3. TRIAMCINOLONE ACETONIDE [Suspect]
     Active Substance: TRIAMCINOLONE ACETONIDE
     Indication: Rheumatoid arthritis
     Route: 014
  4. ORENCIA [Suspect]
     Active Substance: ABATACEPT
     Indication: Rheumatoid arthritis
     Route: 042
  5. ORENCIA [Suspect]
     Active Substance: ABATACEPT
     Route: 042
  6. ORENCIA [Suspect]
     Active Substance: ABATACEPT
     Indication: Rheumatoid arthritis
     Route: 058
  7. ORENCIA [Suspect]
     Active Substance: ABATACEPT
     Indication: Psoriatic arthropathy
  8. ORENCIA [Suspect]
     Active Substance: ABATACEPT
     Indication: Product used for unknown indication
     Route: 058
  9. ORENCIA [Suspect]
     Active Substance: ABATACEPT
  10. ORENCIA [Suspect]
     Active Substance: ABATACEPT
     Route: 058
  11. ORENCIA [Suspect]
     Active Substance: ABATACEPT
     Route: 041
  12. ORENCIA [Suspect]
     Active Substance: ABATACEPT
     Route: 041
  13. ORENCIA [Suspect]
     Active Substance: ABATACEPT
     Route: 048
  14. ACETAMINOPHEN [Concomitant]
     Active Substance: ACETAMINOPHEN
     Indication: Rheumatoid arthritis
  15. ACETAMINOPHEN [Concomitant]
     Active Substance: ACETAMINOPHEN
     Indication: Pain
  16. ACETAMINOPHEN [Concomitant]
     Active Substance: ACETAMINOPHEN
  17. ACETAMINOPHEN\OXYCODONE HYDROCHLORIDE [Concomitant]
     Active Substance: ACETAMINOPHEN\OXYCODONE HYDROCHLORIDE
     Indication: Product used for unknown indication
  18. ACTEMRA [Concomitant]
     Active Substance: TOCILIZUMAB
     Indication: Rheumatoid arthritis
     Route: 042
  19. ACTEMRA [Concomitant]
     Active Substance: TOCILIZUMAB
     Indication: Pain
  20. ACTEMRA [Concomitant]
     Active Substance: TOCILIZUMAB
     Route: 058
  21. ACTEMRA [Concomitant]
     Active Substance: TOCILIZUMAB
     Route: 042
  22. ACTEMRA [Concomitant]
     Active Substance: TOCILIZUMAB
     Route: 042
  23. ACTEMRA [Concomitant]
     Active Substance: TOCILIZUMAB
  24. ACTEMRA [Concomitant]
     Active Substance: TOCILIZUMAB
     Route: 042
  25. ACTEMRA [Concomitant]
     Active Substance: TOCILIZUMAB
     Route: 042
  26. ACTEMRA [Concomitant]
     Active Substance: TOCILIZUMAB
  27. ACTEMRA [Concomitant]
     Active Substance: TOCILIZUMAB
     Route: 042
  28. ACTEMRA [Concomitant]
     Active Substance: TOCILIZUMAB
     Route: 042
  29. ACTEMRA [Concomitant]
     Active Substance: TOCILIZUMAB
     Route: 042
  30. ACTEMRA [Concomitant]
     Active Substance: TOCILIZUMAB
  31. ACTEMRA [Concomitant]
     Active Substance: TOCILIZUMAB
     Route: 042
  32. ACTEMRA [Concomitant]
     Active Substance: TOCILIZUMAB
     Route: 058
  33. ACTEMRA [Concomitant]
     Active Substance: TOCILIZUMAB
     Route: 058
  34. ACTEMRA [Concomitant]
     Active Substance: TOCILIZUMAB
     Route: 042
  35. ACTEMRA [Concomitant]
     Active Substance: TOCILIZUMAB
     Route: 042
  36. ACTEMRA [Concomitant]
     Active Substance: TOCILIZUMAB
  37. ACTEMRA [Concomitant]
     Active Substance: TOCILIZUMAB
     Route: 042
  38. ACTEMRA [Concomitant]
     Active Substance: TOCILIZUMAB
     Route: 042
  39. ACTEMRA [Concomitant]
     Active Substance: TOCILIZUMAB
     Route: 042
  40. ACTEMRA [Concomitant]
     Active Substance: TOCILIZUMAB
     Route: 048
  41. ACTEMRA [Concomitant]
     Active Substance: TOCILIZUMAB
     Route: 016
  42. ACTEMRA [Concomitant]
     Active Substance: TOCILIZUMAB
     Route: 061
  43. ACTEMRA [Concomitant]
     Active Substance: TOCILIZUMAB
     Route: 058
  44. ACTEMRA [Concomitant]
     Active Substance: TOCILIZUMAB
     Route: 048
  45. ACTEMRA [Concomitant]
     Active Substance: TOCILIZUMAB
     Route: 042
  46. ADALIMUMAB [Concomitant]
     Active Substance: ADALIMUMAB
     Indication: Psoriatic arthropathy
     Route: 058
  47. ADALIMUMAB [Concomitant]
     Active Substance: ADALIMUMAB
     Route: 048
  48. ADALIMUMAB [Concomitant]
     Active Substance: ADALIMUMAB
     Route: 058
  49. ADALIMUMAB [Concomitant]
     Active Substance: ADALIMUMAB
     Route: 058
  50. ADALIMUMAB [Concomitant]
     Active Substance: ADALIMUMAB
     Route: 048
  51. ADALIMUMAB [Concomitant]
     Active Substance: ADALIMUMAB
     Route: 058
  52. ALENDRONIC ACID [Concomitant]
     Active Substance: ALENDRONIC ACID
     Indication: Rheumatoid arthritis
     Route: 048
  53. ALENDRONIC ACID [Concomitant]
     Active Substance: ALENDRONIC ACID
  54. ALENDRONIC ACID [Concomitant]
     Active Substance: ALENDRONIC ACID
  55. ALENDRONIC ACID [Concomitant]
     Active Substance: ALENDRONIC ACID
  56. ALENDRONIC ACID [Concomitant]
     Active Substance: ALENDRONIC ACID
     Route: 048
  57. ALENDRONIC ACID [Concomitant]
     Active Substance: ALENDRONIC ACID
     Route: 048
  58. PREDNISONE [Concomitant]
     Active Substance: PREDNISONE
     Indication: Rheumatoid arthritis
     Route: 048
  59. PREDNISONE [Concomitant]
     Active Substance: PREDNISONE
  60. PREDNISONE [Concomitant]
     Active Substance: PREDNISONE
  61. PREDNISONE [Concomitant]
     Active Substance: PREDNISONE
     Route: 048
  62. PREDNISONE [Concomitant]
     Active Substance: PREDNISONE
     Route: 048
  63. PREDNISONE [Concomitant]
     Active Substance: PREDNISONE
  64. PREDNISONE [Concomitant]
     Active Substance: PREDNISONE
     Route: 048
  65. PREDNISONE [Concomitant]
     Active Substance: PREDNISONE
  66. PREDNISONE [Concomitant]
     Active Substance: PREDNISONE
  67. APREMILAST [Concomitant]
     Active Substance: APREMILAST
     Indication: Product used for unknown indication
     Route: 048
  68. APREMILAST [Concomitant]
     Active Substance: APREMILAST
     Route: 048
  69. APREMILAST [Concomitant]
     Active Substance: APREMILAST
     Route: 042
  70. APREMILAST [Concomitant]
     Active Substance: APREMILAST
  71. APREPITANT [Concomitant]
     Active Substance: APREPITANT
     Indication: Product used for unknown indication
     Route: 042
  72. APREPITANT [Concomitant]
     Active Substance: APREPITANT
     Indication: Rheumatoid arthritis
     Route: 042
  73. APREPITANT [Concomitant]
     Active Substance: APREPITANT
  74. APREPITANT [Concomitant]
     Active Substance: APREPITANT
  75. APREPITANT [Concomitant]
     Active Substance: APREPITANT
  76. APREPITANT [Concomitant]
     Active Substance: APREPITANT
  77. ARAVA [Concomitant]
     Active Substance: LEFLUNOMIDE
     Indication: Rheumatoid arthritis
     Route: 048
  78. ARAVA [Concomitant]
     Active Substance: LEFLUNOMIDE
     Indication: Product used for unknown indication
     Route: 048
  79. ARAVA [Concomitant]
     Active Substance: LEFLUNOMIDE
  80. ARAVA [Concomitant]
     Active Substance: LEFLUNOMIDE
     Route: 048
  81. CELECOXIB [Concomitant]
     Active Substance: CELECOXIB
     Indication: Product used for unknown indication
  82. CELECOXIB [Concomitant]
     Active Substance: CELECOXIB
     Indication: Rheumatoid arthritis
  83. CELECOXIB [Concomitant]
     Active Substance: CELECOXIB
     Indication: Psoriatic arthropathy
  84. CELECOXIB [Concomitant]
     Active Substance: CELECOXIB
     Route: 048
  85. CELECOXIB [Concomitant]
     Active Substance: CELECOXIB
  86. CELECOXIB [Concomitant]
     Active Substance: CELECOXIB
  87. CELECOXIB [Concomitant]
     Active Substance: CELECOXIB
  88. CELECOXIB [Concomitant]
     Active Substance: CELECOXIB
  89. CELECOXIB [Concomitant]
     Active Substance: CELECOXIB
  90. CERTOLIZUMAB PEGOL [Concomitant]
     Active Substance: CERTOLIZUMAB PEGOL
     Indication: Product used for unknown indication
  91. CETIRIZINE HYDROCHLORIDE [Concomitant]
     Active Substance: CETIRIZINE HYDROCHLORIDE
     Indication: Rheumatoid arthritis
  92. CETIRIZINE HYDROCHLORIDE [Concomitant]
     Active Substance: CETIRIZINE HYDROCHLORIDE
     Route: 048
  93. CETIRIZINE HYDROCHLORIDE [Concomitant]
     Active Substance: CETIRIZINE HYDROCHLORIDE
     Route: 048
  94. CETIRIZINE HYDROCHLORIDE [Concomitant]
     Active Substance: CETIRIZINE HYDROCHLORIDE
     Route: 048
  95. CETIRIZINE HYDROCHLORIDE [Concomitant]
     Active Substance: CETIRIZINE HYDROCHLORIDE
  96. CETIRIZINE HYDROCHLORIDE [Concomitant]
     Active Substance: CETIRIZINE HYDROCHLORIDE
  97. CETIRIZINE HYDROCHLORIDE [Concomitant]
     Active Substance: CETIRIZINE HYDROCHLORIDE
  98. CETIRIZINE HYDROCHLORIDE [Concomitant]
     Active Substance: CETIRIZINE HYDROCHLORIDE
     Route: 048
  99. CETIRIZINE HYDROCHLORIDE [Concomitant]
     Active Substance: CETIRIZINE HYDROCHLORIDE
  100. CETIRIZINE HYDROCHLORIDE [Concomitant]
     Active Substance: CETIRIZINE HYDROCHLORIDE
  101. CETIRIZINE HYDROCHLORIDE [Concomitant]
     Active Substance: CETIRIZINE HYDROCHLORIDE
  102. CETIRIZINE HYDROCHLORIDE [Concomitant]
     Active Substance: CETIRIZINE HYDROCHLORIDE
  103. CETIRIZINE HYDROCHLORIDE [Concomitant]
     Active Substance: CETIRIZINE HYDROCHLORIDE
     Route: 048
  104. CETIRIZINE HYDROCHLORIDE [Concomitant]
     Active Substance: CETIRIZINE HYDROCHLORIDE
     Route: 048
  105. CETIRIZINE HYDROCHLORIDE [Concomitant]
     Active Substance: CETIRIZINE HYDROCHLORIDE
     Route: 048
  106. CETIRIZINE HYDROCHLORIDE [Concomitant]
     Active Substance: CETIRIZINE HYDROCHLORIDE
  107. CETIRIZINE HYDROCHLORIDE [Concomitant]
     Active Substance: CETIRIZINE HYDROCHLORIDE
  108. CETIRIZINE HYDROCHLORIDE [Concomitant]
     Active Substance: CETIRIZINE HYDROCHLORIDE
     Route: 048
  109. CHLORAPREP [Concomitant]
     Active Substance: CHLORHEXIDINE GLUCONATE\ISOPROPYL ALCOHOL
     Indication: Product used for unknown indication
     Route: 061
  110. CHLORAPREP [Concomitant]
     Active Substance: CHLORHEXIDINE GLUCONATE\ISOPROPYL ALCOHOL
  111. CHLORAPREP [Concomitant]
     Active Substance: CHLORHEXIDINE GLUCONATE\ISOPROPYL ALCOHOL
     Route: 061
  112. CHLORAPREP [Concomitant]
     Active Substance: CHLORHEXIDINE GLUCONATE\ISOPROPYL ALCOHOL
     Route: 048
  113. CHLORAPREP [Concomitant]
     Active Substance: CHLORHEXIDINE GLUCONATE\ISOPROPYL ALCOHOL
     Route: 048
  114. CHLORAPREP [Concomitant]
     Active Substance: CHLORHEXIDINE GLUCONATE\ISOPROPYL ALCOHOL
     Route: 061
  115. CHLORAPREP [Concomitant]
     Active Substance: CHLORHEXIDINE GLUCONATE\ISOPROPYL ALCOHOL
  116. CHLORAPREP [Concomitant]
     Active Substance: CHLORHEXIDINE GLUCONATE\ISOPROPYL ALCOHOL
     Route: 048
  117. CHLORHEXIDINE GLUCONATE [Concomitant]
     Active Substance: CHLORHEXIDINE GLUCONATE
     Indication: Product used for unknown indication
     Route: 061
  118. CHLORHEXIDINE GLUCONATE [Concomitant]
     Active Substance: CHLORHEXIDINE GLUCONATE
     Route: 048
  119. CHLORHEXIDINE GLUCONATE [Concomitant]
     Active Substance: CHLORHEXIDINE GLUCONATE
     Route: 002
  120. CHLORHEXIDINE GLUCONATE\ISOPROPYL ALCOHOL [Concomitant]
     Active Substance: CHLORHEXIDINE GLUCONATE\ISOPROPYL ALCOHOL
     Indication: Product used for unknown indication
     Route: 048
  121. CHLORHEXIDINE GLUCONATE\ISOPROPYL ALCOHOL [Concomitant]
     Active Substance: CHLORHEXIDINE GLUCONATE\ISOPROPYL ALCOHOL
     Route: 002
  122. CHLORHEXIDINE GLUCONATE\ISOPROPYL ALCOHOL [Concomitant]
     Active Substance: CHLORHEXIDINE GLUCONATE\ISOPROPYL ALCOHOL
     Route: 061
  123. CIMZIA [Concomitant]
     Active Substance: CERTOLIZUMAB PEGOL
     Indication: Rheumatoid arthritis
     Route: 058
  124. CIMZIA [Concomitant]
     Active Substance: CERTOLIZUMAB PEGOL
     Indication: Psoriatic arthropathy
     Route: 058
  125. CIMZIA [Concomitant]
     Active Substance: CERTOLIZUMAB PEGOL
     Indication: Psoriasis
     Route: 058
  126. CIMZIA [Concomitant]
     Active Substance: CERTOLIZUMAB PEGOL
  127. CIMZIA [Concomitant]
     Active Substance: CERTOLIZUMAB PEGOL
  128. CIMZIA [Concomitant]
     Active Substance: CERTOLIZUMAB PEGOL
  129. CIMZIA [Concomitant]
     Active Substance: CERTOLIZUMAB PEGOL
     Route: 058
  130. CIMZIA [Concomitant]
     Active Substance: CERTOLIZUMAB PEGOL
     Route: 058
  131. CIMZIA [Concomitant]
     Active Substance: CERTOLIZUMAB PEGOL
     Route: 058
  132. CIMZIA [Concomitant]
     Active Substance: CERTOLIZUMAB PEGOL
  133. CIMZIA [Concomitant]
     Active Substance: CERTOLIZUMAB PEGOL
     Route: 058
  134. CIMZIA [Concomitant]
     Active Substance: CERTOLIZUMAB PEGOL
     Route: 058
  135. CIMZIA [Concomitant]
     Active Substance: CERTOLIZUMAB PEGOL
  136. CIMZIA [Concomitant]
     Active Substance: CERTOLIZUMAB PEGOL
     Route: 005
  137. CIMZIA [Concomitant]
     Active Substance: CERTOLIZUMAB PEGOL
     Route: 042
  138. CIMZIA [Concomitant]
     Active Substance: CERTOLIZUMAB PEGOL
  139. CIMZIA [Concomitant]
     Active Substance: CERTOLIZUMAB PEGOL
  140. CORTISONE ACETATE [Concomitant]
     Active Substance: CORTISONE ACETATE
     Indication: Rheumatoid arthritis
  141. CORTISONE ACETATE [Concomitant]
     Active Substance: CORTISONE ACETATE
     Route: 048
  142. CORTISONE ACETATE [Concomitant]
     Active Substance: CORTISONE ACETATE
     Route: 058
  143. CORTISONE ACETATE [Concomitant]
     Active Substance: CORTISONE ACETATE
     Route: 003
  144. CORTISONE ACETATE [Concomitant]
     Active Substance: CORTISONE ACETATE
     Route: 048
  145. CORTISONE ACETATE [Concomitant]
     Active Substance: CORTISONE ACETATE
     Route: 061
  146. CORTISONE ACETATE [Concomitant]
     Active Substance: CORTISONE ACETATE
     Route: 058
  147. CORTISONE ACETATE [Concomitant]
     Active Substance: CORTISONE ACETATE
     Route: 058
  148. CORTISONE ACETATE [Concomitant]
     Active Substance: CORTISONE ACETATE
     Route: 058
  149. CORTISONE ACETATE [Concomitant]
     Active Substance: CORTISONE ACETATE
     Route: 003
  150. CORTISONE ACETATE [Concomitant]
     Active Substance: CORTISONE ACETATE
     Route: 003
  151. CORTISONE ACETATE [Concomitant]
     Active Substance: CORTISONE ACETATE
  152. CORTISONE ACETATE [Concomitant]
     Active Substance: CORTISONE ACETATE
     Route: 003
  153. CORTISONE ACETATE [Concomitant]
     Active Substance: CORTISONE ACETATE
     Route: 048
  154. CORTISONE ACETATE [Concomitant]
     Active Substance: CORTISONE ACETATE
     Route: 048
  155. CORTISONE ACETATE [Concomitant]
     Active Substance: CORTISONE ACETATE
     Route: 048
  156. CORTISONE ACETATE [Concomitant]
     Active Substance: CORTISONE ACETATE
     Route: 048
  157. CORTISONE ACETATE [Concomitant]
     Active Substance: CORTISONE ACETATE
     Route: 048
  158. CORTISONE ACETATE [Concomitant]
     Active Substance: CORTISONE ACETATE
     Route: 061
  159. CORTISONE ACETATE [Concomitant]
     Active Substance: CORTISONE ACETATE
  160. CORTISONE ACETATE [Concomitant]
     Active Substance: CORTISONE ACETATE
     Route: 048
  161. CORTISONE ACETATE [Concomitant]
     Active Substance: CORTISONE ACETATE
  162. CORTISONE ACETATE [Concomitant]
     Active Substance: CORTISONE ACETATE
     Route: 061
  163. CORTISONE ACETATE [Concomitant]
     Active Substance: CORTISONE ACETATE
     Route: 061
  164. CORTISONE ACETATE [Concomitant]
     Active Substance: CORTISONE ACETATE
  165. CORTISONE ACETATE [Concomitant]
     Active Substance: CORTISONE ACETATE
     Route: 048
  166. CORTISONE ACETATE [Concomitant]
     Active Substance: CORTISONE ACETATE
     Route: 003
  167. CORTISONE ACETATE [Concomitant]
     Active Substance: CORTISONE ACETATE
     Route: 048
  168. CORTISONE ACETATE [Concomitant]
     Active Substance: CORTISONE ACETATE
     Route: 048
  169. COSENTYX [Concomitant]
     Active Substance: SECUKINUMAB
     Indication: Rheumatoid arthritis
  170. COSENTYX [Concomitant]
     Active Substance: SECUKINUMAB
     Indication: Psoriatic arthropathy
     Route: 005
  171. COSENTYX [Concomitant]
     Active Substance: SECUKINUMAB
     Indication: Product used for unknown indication
  172. SECUKINUMAB [Concomitant]
     Active Substance: SECUKINUMAB
     Indication: Product used for unknown indication
  173. DESOXIMETASONE [Concomitant]
     Active Substance: DESOXIMETASONE
     Indication: Rheumatoid arthritis
     Route: 048
  174. DESOXIMETASONE [Concomitant]
     Active Substance: DESOXIMETASONE
     Indication: Product used for unknown indication
     Route: 048
  175. DESOXIMETASONE [Concomitant]
     Active Substance: DESOXIMETASONE
     Route: 048
  176. DESOXIMETASONE [Concomitant]
     Active Substance: DESOXIMETASONE
     Route: 048
  177. DESOXIMETASONE [Concomitant]
     Active Substance: DESOXIMETASONE
     Route: 048
  178. DESOXIMETASONE [Concomitant]
     Active Substance: DESOXIMETASONE
     Route: 061
  179. DESOXIMETASONE [Concomitant]
     Active Substance: DESOXIMETASONE
     Route: 058
  180. DESOXIMETASONE [Concomitant]
     Active Substance: DESOXIMETASONE
     Route: 058
  181. DESOXIMETASONE [Concomitant]
     Active Substance: DESOXIMETASONE
  182. DESOXIMETASONE [Concomitant]
     Active Substance: DESOXIMETASONE
  183. DESOXIMETASONE [Concomitant]
     Active Substance: DESOXIMETASONE
  184. DESOXIMETASONE [Concomitant]
     Active Substance: DESOXIMETASONE
     Route: 061
  185. DESOXIMETASONE [Concomitant]
     Active Substance: DESOXIMETASONE
     Route: 061
  186. DESOXIMETASONE [Concomitant]
     Active Substance: DESOXIMETASONE
  187. DESOXIMETASONE [Concomitant]
     Active Substance: DESOXIMETASONE
  188. DESOXIMETASONE [Concomitant]
     Active Substance: DESOXIMETASONE
     Route: 048
  189. DESOXIMETASONE [Concomitant]
     Active Substance: DESOXIMETASONE
     Route: 003
  190. DESOXIMETASONE [Concomitant]
     Active Substance: DESOXIMETASONE
  191. DESOXIMETASONE [Concomitant]
     Active Substance: DESOXIMETASONE
     Route: 058
  192. DESOXIMETASONE [Concomitant]
     Active Substance: DESOXIMETASONE
     Route: 042
  193. DESOXIMETASONE [Concomitant]
     Active Substance: DESOXIMETASONE
     Route: 061
  194. DESOXIMETASONE [Concomitant]
     Active Substance: DESOXIMETASONE
     Route: 003
  195. DESOXIMETASONE [Concomitant]
     Active Substance: DESOXIMETASONE
     Route: 048
  196. DESOXIMETASONE [Concomitant]
     Active Substance: DESOXIMETASONE
     Route: 003
  197. DESOXIMETASONE [Concomitant]
     Active Substance: DESOXIMETASONE
  198. DESOXIMETASONE [Concomitant]
     Active Substance: DESOXIMETASONE
     Route: 003
  199. DESOXIMETASONE [Concomitant]
     Active Substance: DESOXIMETASONE
     Route: 048
  200. DESOXIMETASONE [Concomitant]
     Active Substance: DESOXIMETASONE
     Route: 003
  201. DESOXIMETASONE [Concomitant]
     Active Substance: DESOXIMETASONE
     Route: 058
  202. DESOXIMETASONE [Concomitant]
     Active Substance: DESOXIMETASONE
     Route: 048
  203. DESOXIMETASONE [Concomitant]
     Active Substance: DESOXIMETASONE
     Route: 061
  204. DESOXIMETASONE [Concomitant]
     Active Substance: DESOXIMETASONE
  205. DESOXIMETASONE [Concomitant]
     Active Substance: DESOXIMETASONE
     Route: 048
  206. DESOXIMETASONE [Concomitant]
     Active Substance: DESOXIMETASONE
     Route: 058
  207. DESOXIMETASONE [Concomitant]
     Active Substance: DESOXIMETASONE
     Route: 048
  208. DESOXIMETASONE [Concomitant]
     Active Substance: DESOXIMETASONE
     Route: 048
  209. DICLOFENAC DIETHYLAMINE [Concomitant]
     Active Substance: DICLOFENAC DIETHYLAMINE
     Indication: Product used for unknown indication
  210. DICLOFENAC DIETHYLAMINE [Concomitant]
     Active Substance: DICLOFENAC DIETHYLAMINE
     Route: 061
  211. DICLOFENAC POTASSIUM [Concomitant]
     Active Substance: DICLOFENAC POTASSIUM
     Indication: Product used for unknown indication
  212. DICLOFENAC POTASSIUM [Concomitant]
     Active Substance: DICLOFENAC POTASSIUM
     Route: 058
  213. DICLOFENAC POTASSIUM [Concomitant]
     Active Substance: DICLOFENAC POTASSIUM
  214. DICLOFENAC POTASSIUM [Concomitant]
     Active Substance: DICLOFENAC POTASSIUM
     Route: 048
  215. DICLOFENAC POTASSIUM [Concomitant]
     Active Substance: DICLOFENAC POTASSIUM
     Route: 031
  216. DICLOFENAC POTASSIUM [Concomitant]
     Active Substance: DICLOFENAC POTASSIUM
     Route: 058
  217. DICLOFENAC POTASSIUM [Concomitant]
     Active Substance: DICLOFENAC POTASSIUM
     Route: 058
  218. DICLOFENAC POTASSIUM [Concomitant]
     Active Substance: DICLOFENAC POTASSIUM
     Route: 058
  219. DICLOFENAC POTASSIUM [Concomitant]
     Active Substance: DICLOFENAC POTASSIUM
  220. DICLOFENAC POTASSIUM [Concomitant]
     Active Substance: DICLOFENAC POTASSIUM
     Route: 047
  221. DICLOFENAC POTASSIUM [Concomitant]
     Active Substance: DICLOFENAC POTASSIUM
     Route: 047
  222. DICLOFENAC POTASSIUM [Concomitant]
     Active Substance: DICLOFENAC POTASSIUM
  223. DICLOFENAC POTASSIUM [Concomitant]
     Active Substance: DICLOFENAC POTASSIUM
  224. DICLOFENAC POTASSIUM [Concomitant]
     Active Substance: DICLOFENAC POTASSIUM
     Route: 058
  225. DICLOFENAC POTASSIUM [Concomitant]
     Active Substance: DICLOFENAC POTASSIUM
  226. DICLOFENAC POTASSIUM [Concomitant]
     Active Substance: DICLOFENAC POTASSIUM
     Route: 058
  227. DICLOFENAC POTASSIUM [Concomitant]
     Active Substance: DICLOFENAC POTASSIUM
  228. DICLOFENAC POTASSIUM [Concomitant]
     Active Substance: DICLOFENAC POTASSIUM
     Route: 058
  229. DICLOFENAC POTASSIUM [Concomitant]
     Active Substance: DICLOFENAC POTASSIUM
  230. DICLOFENAC POTASSIUM [Concomitant]
     Active Substance: DICLOFENAC POTASSIUM
     Route: 048
  231. DICLOFENAC POTASSIUM [Concomitant]
     Active Substance: DICLOFENAC POTASSIUM
     Route: 047
  232. DICLOFENAC POTASSIUM [Concomitant]
     Active Substance: DICLOFENAC POTASSIUM
  233. DICLOFENAC SODIUM [Concomitant]
     Active Substance: DICLOFENAC SODIUM
     Indication: Product used for unknown indication
     Route: 058
  234. DICLOFENAC SODIUM [Concomitant]
     Active Substance: DICLOFENAC SODIUM
  235. DICLOFENAC SODIUM [Concomitant]
     Active Substance: DICLOFENAC SODIUM
  236. DICLOFENAC SODIUM [Concomitant]
     Active Substance: DICLOFENAC SODIUM
     Route: 058
  237. DICLOFENAC SODIUM [Concomitant]
     Active Substance: DICLOFENAC SODIUM
  238. DICLOFENAC SODIUM [Concomitant]
     Active Substance: DICLOFENAC SODIUM
     Route: 058
  239. DICLOFENAC SODIUM [Concomitant]
     Active Substance: DICLOFENAC SODIUM
     Route: 031
  240. DICLOFENAC SODIUM [Concomitant]
     Active Substance: DICLOFENAC SODIUM
     Route: 048
  241. DICLOFENAC SODIUM [Concomitant]
     Active Substance: DICLOFENAC SODIUM
  242. DICLOFENAC SODIUM [Concomitant]
     Active Substance: DICLOFENAC SODIUM
     Route: 058
  243. DICLOFENAC SODIUM [Concomitant]
     Active Substance: DICLOFENAC SODIUM
  244. DICLOFENAC SODIUM [Concomitant]
     Active Substance: DICLOFENAC SODIUM
  245. DICLOFENAC SODIUM [Concomitant]
     Active Substance: DICLOFENAC SODIUM
  246. DICLOFENAC SODIUM [Concomitant]
     Active Substance: DICLOFENAC SODIUM
  247. DICLOFENAC SODIUM [Concomitant]
     Active Substance: DICLOFENAC SODIUM
     Route: 048
  248. DOXYCYCLINE HYCLATE [Concomitant]
     Active Substance: DOXYCYCLINE HYCLATE
     Indication: Product used for unknown indication
  249. DOXYCYCLINE HYCLATE [Concomitant]
     Active Substance: DOXYCYCLINE HYCLATE
  250. DOXYCYCLINE HYCLATE [Concomitant]
     Active Substance: DOXYCYCLINE HYCLATE
  251. ENBREL [Concomitant]
     Active Substance: ETANERCEPT
     Indication: Rheumatoid arthritis
     Route: 058
  252. ENBREL [Concomitant]
     Active Substance: ETANERCEPT
     Indication: Psoriatic arthropathy
     Route: 058
  253. ENBREL [Concomitant]
     Active Substance: ETANERCEPT
     Indication: Product used for unknown indication
  254. ENBREL [Concomitant]
     Active Substance: ETANERCEPT
     Route: 058
  255. ENBREL [Concomitant]
     Active Substance: ETANERCEPT
  256. ENBREL [Concomitant]
     Active Substance: ETANERCEPT
     Route: 058
  257. ENBREL [Concomitant]
     Active Substance: ETANERCEPT
     Route: 058
  258. ENBREL [Concomitant]
     Active Substance: ETANERCEPT
     Route: 058
  259. ENBREL [Concomitant]
     Active Substance: ETANERCEPT
     Route: 048
  260. ENBREL [Concomitant]
     Active Substance: ETANERCEPT
     Route: 058
  261. ENBREL [Concomitant]
     Active Substance: ETANERCEPT
     Route: 048
  262. ENBREL [Concomitant]
     Active Substance: ETANERCEPT
     Route: 058
  263. ENBREL [Concomitant]
     Active Substance: ETANERCEPT
     Route: 058
  264. ENBREL [Concomitant]
     Active Substance: ETANERCEPT
     Route: 058
  265. ENBREL [Concomitant]
     Active Substance: ETANERCEPT
     Route: 042
  266. ERELZI [Concomitant]
     Active Substance: ETANERCEPT-SZZS
     Indication: Rheumatoid arthritis
     Route: 058
  267. ERELZI [Concomitant]
     Active Substance: ETANERCEPT-SZZS
  268. ERELZI [Concomitant]
     Active Substance: ETANERCEPT-SZZS
     Route: 058
  269. ERELZI [Concomitant]
     Active Substance: ETANERCEPT-SZZS
     Route: 058
  270. ERELZI [Concomitant]
     Active Substance: ETANERCEPT-SZZS
     Route: 058
  271. FLUMETHASONE PIVALATE [Concomitant]
     Active Substance: FLUMETHASONE PIVALATE
     Indication: Rheumatoid arthritis
     Route: 058
  272. FLUMETHASONE PIVALATE [Concomitant]
     Active Substance: FLUMETHASONE PIVALATE
     Route: 058
  273. FLUMETHASONE PIVALATE [Concomitant]
     Active Substance: FLUMETHASONE PIVALATE
     Route: 003
  274. FLUMETHASONE PIVALATE [Concomitant]
     Active Substance: FLUMETHASONE PIVALATE
  275. FLUMETHASONE PIVALATE [Concomitant]
     Active Substance: FLUMETHASONE PIVALATE
     Route: 048
  276. FLUMETHASONE PIVALATE\NEOMYCIN SULFATE [Concomitant]
     Active Substance: FLUMETHASONE PIVALATE\NEOMYCIN SULFATE
     Indication: Rheumatoid arthritis
  277. FOLIC ACID [Concomitant]
     Active Substance: FOLIC ACID
     Indication: Rheumatoid arthritis
     Route: 058
  278. FOLIC ACID [Concomitant]
     Active Substance: FOLIC ACID
  279. FOLIC ACID [Concomitant]
     Active Substance: FOLIC ACID
  280. FOLIC ACID [Concomitant]
     Active Substance: FOLIC ACID
  281. FOLIC ACID [Concomitant]
     Active Substance: FOLIC ACID
     Route: 048
  282. FOLIC ACID [Concomitant]
     Active Substance: FOLIC ACID
     Route: 048
  283. FOLIC ACID [Concomitant]
     Active Substance: FOLIC ACID
     Route: 058
  284. FOLIC ACID [Concomitant]
     Active Substance: FOLIC ACID
     Route: 048
  285. FOLIC ACID [Concomitant]
     Active Substance: FOLIC ACID
     Route: 048
  286. FOLIC ACID [Concomitant]
     Active Substance: FOLIC ACID
     Route: 048
  287. FOLIC ACID [Concomitant]
     Active Substance: FOLIC ACID
  288. FOLIC ACID [Concomitant]
     Active Substance: FOLIC ACID
     Route: 048
  289. FOLIC ACID [Concomitant]
     Active Substance: FOLIC ACID
  290. FOLIC ACID [Concomitant]
     Active Substance: FOLIC ACID
  291. FOLIC ACID [Concomitant]
     Active Substance: FOLIC ACID
  292. FOLIC ACID [Concomitant]
     Active Substance: FOLIC ACID
  293. FOLIC ACID [Concomitant]
     Active Substance: FOLIC ACID
     Route: 048
  294. FOLIC ACID [Concomitant]
     Active Substance: FOLIC ACID
     Route: 048
  295. FOLIC ACID [Concomitant]
     Active Substance: FOLIC ACID
     Route: 058
  296. FOLIC ACID [Concomitant]
     Active Substance: FOLIC ACID
  297. FOLIC ACID [Concomitant]
     Active Substance: FOLIC ACID
  298. FOLIC ACID [Concomitant]
     Active Substance: FOLIC ACID
     Route: 058
  299. FOLIC ACID [Concomitant]
     Active Substance: FOLIC ACID
  300. FOSAMAX [Concomitant]
     Active Substance: ALENDRONATE SODIUM
     Indication: Rheumatoid arthritis
     Route: 058
  301. FOSAMAX [Concomitant]
     Active Substance: ALENDRONATE SODIUM
     Route: 048
  302. FOSAMAX [Concomitant]
     Active Substance: ALENDRONATE SODIUM
  303. GOLIMUMAB [Concomitant]
     Active Substance: GOLIMUMAB
     Indication: Rheumatoid arthritis
  304. GOLIMUMAB [Concomitant]
     Active Substance: GOLIMUMAB
     Route: 058
  305. GOLIMUMAB [Concomitant]
     Active Substance: GOLIMUMAB
     Route: 042
  306. GOLIMUMAB [Concomitant]
     Active Substance: GOLIMUMAB
     Route: 052
  307. GOLIMUMAB [Concomitant]
     Active Substance: GOLIMUMAB
  308. HUMIRA [Concomitant]
     Active Substance: ADALIMUMAB
     Indication: Rheumatoid arthritis
     Route: 058
  309. HUMIRA [Concomitant]
     Active Substance: ADALIMUMAB
     Indication: Psoriatic arthropathy
     Route: 058
  310. HUMIRA [Concomitant]
     Active Substance: ADALIMUMAB
  311. HUMIRA [Concomitant]
     Active Substance: ADALIMUMAB
  312. HUMIRA [Concomitant]
     Active Substance: ADALIMUMAB
     Route: 058
  313. HUMIRA [Concomitant]
     Active Substance: ADALIMUMAB
     Route: 058
  314. HUMIRA [Concomitant]
     Active Substance: ADALIMUMAB
     Route: 058
  315. HUMIRA [Concomitant]
     Active Substance: ADALIMUMAB
     Route: 058
  316. HYDROCORTISONE BUTYRATE [Concomitant]
     Active Substance: HYDROCORTISONE BUTYRATE
     Indication: Rheumatoid arthritis
     Route: 058
  317. HYDROCORTISONE PROBUTATE [Concomitant]
     Active Substance: HYDROCORTISONE PROBUTATE
     Indication: Rheumatoid arthritis
     Route: 058
  318. HYDROCORTISONE SODIUM SUCCINATE [Concomitant]
     Active Substance: HYDROCORTISONE SODIUM SUCCINATE
     Indication: Rheumatoid arthritis
     Route: 048
  319. HYDROCORTISONE SODIUM SUCCINATE [Concomitant]
     Active Substance: HYDROCORTISONE SODIUM SUCCINATE
  320. HYDROCORTISONE SODIUM SUCCINATE [Concomitant]
     Active Substance: HYDROCORTISONE SODIUM SUCCINATE
  321. HYDROCORTISONE SODIUM SUCCINATE [Concomitant]
     Active Substance: HYDROCORTISONE SODIUM SUCCINATE
     Route: 048
  322. HYDROXYCHLOROQUINE SULFATE [Concomitant]
     Active Substance: HYDROXYCHLOROQUINE SULFATE
     Indication: Systemic lupus erythematosus
  323. HYDROXYCHLOROQUINE SULFATE [Concomitant]
     Active Substance: HYDROXYCHLOROQUINE SULFATE
     Indication: Rheumatoid arthritis
     Route: 048
  324. HYDROXYCHLOROQUINE SULFATE [Concomitant]
     Active Substance: HYDROXYCHLOROQUINE SULFATE
     Route: 058
  325. HYDROXYCHLOROQUINE SULFATE [Concomitant]
     Active Substance: HYDROXYCHLOROQUINE SULFATE
     Route: 048
  326. HYDROXYCHLOROQUINE SULFATE [Concomitant]
     Active Substance: HYDROXYCHLOROQUINE SULFATE
     Route: 048
  327. HYDROXYCHLOROQUINE SULFATE [Concomitant]
     Active Substance: HYDROXYCHLOROQUINE SULFATE
     Route: 048
  328. HYDROXYCHLOROQUINE SULFATE [Concomitant]
     Active Substance: HYDROXYCHLOROQUINE SULFATE
  329. HYDROXYCHLOROQUINE SULFATE [Concomitant]
     Active Substance: HYDROXYCHLOROQUINE SULFATE
  330. HYDROXYCHLOROQUINE SULFATE [Concomitant]
     Active Substance: HYDROXYCHLOROQUINE SULFATE
  331. HYDROXYCHLOROQUINE SULFATE [Concomitant]
     Active Substance: HYDROXYCHLOROQUINE SULFATE
     Route: 048
  332. HYDROXYCHLOROQUINE SULFATE [Concomitant]
     Active Substance: HYDROXYCHLOROQUINE SULFATE
  333. HYDROXYCHLOROQUINE SULFATE [Concomitant]
     Active Substance: HYDROXYCHLOROQUINE SULFATE
     Route: 048
  334. HYDROXYCHLOROQUINE SULFATE [Concomitant]
     Active Substance: HYDROXYCHLOROQUINE SULFATE
  335. HYDROXYCHLOROQUINE SULFATE [Concomitant]
     Active Substance: HYDROXYCHLOROQUINE SULFATE
     Route: 048
  336. HYDROXYCHLOROQUINE SULFATE [Concomitant]
     Active Substance: HYDROXYCHLOROQUINE SULFATE
     Route: 048
  337. HYDROXYCHLOROQUINE SULFATE [Concomitant]
     Active Substance: HYDROXYCHLOROQUINE SULFATE
     Route: 048
  338. HYDROXYCHLOROQUINE SULFATE [Concomitant]
     Active Substance: HYDROXYCHLOROQUINE SULFATE
  339. HYDROXYCHLOROQUINE SULFATE [Concomitant]
     Active Substance: HYDROXYCHLOROQUINE SULFATE
  340. HYDROXYCHLOROQUINE SULFATE [Concomitant]
     Active Substance: HYDROXYCHLOROQUINE SULFATE
  341. HYDROXYCHLOROQUINE SULFATE [Concomitant]
     Active Substance: HYDROXYCHLOROQUINE SULFATE
  342. HYDROXYCHLOROQUINE SULFATE [Concomitant]
     Active Substance: HYDROXYCHLOROQUINE SULFATE
     Route: 058
  343. INFLIXIMAB [Concomitant]
     Active Substance: INFLIXIMAB
     Indication: Rheumatoid arthritis
     Route: 042
  344. INFLIXIMAB [Concomitant]
     Active Substance: INFLIXIMAB
     Route: 042
  345. INFLIXIMAB [Concomitant]
     Active Substance: INFLIXIMAB
  346. INFLIXIMAB [Concomitant]
     Active Substance: INFLIXIMAB
  347. INFLIXIMAB [Concomitant]
     Active Substance: INFLIXIMAB
  348. INFLIXIMAB [Concomitant]
     Active Substance: INFLIXIMAB
     Route: 042
  349. INFLIXIMAB [Concomitant]
     Active Substance: INFLIXIMAB
     Route: 042
  350. INFLIXIMAB [Concomitant]
     Active Substance: INFLIXIMAB
     Route: 016
  351. INFLIXIMAB [Concomitant]
     Active Substance: INFLIXIMAB
  352. ISOPROPYL ALCOHOL [Concomitant]
     Active Substance: ISOPROPYL ALCOHOL
     Indication: Product used for unknown indication
     Route: 061
  353. ISOPROPYL ALCOHOL [Concomitant]
     Active Substance: ISOPROPYL ALCOHOL
     Route: 061
  354. LEFLUNOMIDE [Concomitant]
     Active Substance: LEFLUNOMIDE
     Indication: Rheumatoid arthritis
     Route: 048
  355. LEFLUNOMIDE [Concomitant]
     Active Substance: LEFLUNOMIDE
     Route: 048
  356. LEFLUNOMIDE [Concomitant]
     Active Substance: LEFLUNOMIDE
  357. LEFLUNOMIDE [Concomitant]
     Active Substance: LEFLUNOMIDE
     Route: 048
  358. LEFLUNOMIDE [Concomitant]
     Active Substance: LEFLUNOMIDE
  359. METHOTREXATE [Concomitant]
     Active Substance: METHOTREXATE
     Indication: Rheumatoid arthritis
     Route: 055
  360. METHOTREXATE [Concomitant]
     Active Substance: METHOTREXATE
     Indication: Product used for unknown indication
     Route: 048
  361. METHOTREXATE [Concomitant]
     Active Substance: METHOTREXATE
     Route: 048
  362. METHOTREXATE [Concomitant]
     Active Substance: METHOTREXATE
     Route: 058
  363. METHOTREXATE [Concomitant]
     Active Substance: METHOTREXATE
     Route: 013
  364. METHOTREXATE [Concomitant]
     Active Substance: METHOTREXATE
     Route: 048
  365. METHOTREXATE [Concomitant]
     Active Substance: METHOTREXATE
     Route: 013
  366. METHOTREXATE [Concomitant]
     Active Substance: METHOTREXATE
  367. METHOTREXATE [Concomitant]
     Active Substance: METHOTREXATE
     Route: 048
  368. METHOTREXATE [Concomitant]
     Active Substance: METHOTREXATE
     Route: 048
  369. METHOTREXATE [Concomitant]
     Active Substance: METHOTREXATE
     Route: 048
  370. METHOTREXATE [Concomitant]
     Active Substance: METHOTREXATE
  371. METHOTREXATE [Concomitant]
     Active Substance: METHOTREXATE
     Route: 048
  372. METHOTREXATE [Concomitant]
     Active Substance: METHOTREXATE
     Route: 048
  373. METHOTREXATE [Concomitant]
     Active Substance: METHOTREXATE
     Route: 048
  374. METHOTREXATE [Concomitant]
     Active Substance: METHOTREXATE
     Route: 048
  375. METHOTREXATE [Concomitant]
     Active Substance: METHOTREXATE
     Route: 048
  376. METHOTREXATE [Concomitant]
     Active Substance: METHOTREXATE
     Route: 048
  377. METHOTREXATE [Concomitant]
     Active Substance: METHOTREXATE
     Route: 058
  378. METHOTREXATE [Concomitant]
     Active Substance: METHOTREXATE
  379. METHOTREXATE [Concomitant]
     Active Substance: METHOTREXATE
     Route: 058
  380. METHOTREXATE [Concomitant]
     Active Substance: METHOTREXATE
     Route: 013
  381. METHOTREXATE [Concomitant]
     Active Substance: METHOTREXATE
     Route: 037
  382. METHOTREXATE [Concomitant]
     Active Substance: METHOTREXATE
  383. METHOTREXATE [Concomitant]
     Active Substance: METHOTREXATE
  384. METHOTREXATE [Concomitant]
     Active Substance: METHOTREXATE
     Route: 048
  385. METHOTREXATE [Concomitant]
     Active Substance: METHOTREXATE
     Route: 048
  386. METHOTREXATE [Concomitant]
     Active Substance: METHOTREXATE
     Route: 013
  387. METHOTREXATE [Concomitant]
     Active Substance: METHOTREXATE
     Route: 058
  388. METHOTREXATE [Concomitant]
     Active Substance: METHOTREXATE
  389. METHOTREXATE [Concomitant]
     Active Substance: METHOTREXATE
     Route: 048
  390. METHOTREXATE [Concomitant]
     Active Substance: METHOTREXATE
  391. METHOTREXATE [Concomitant]
     Active Substance: METHOTREXATE
     Route: 058
  392. METHOTREXATE [Concomitant]
     Active Substance: METHOTREXATE
     Route: 058
  393. METHOTREXATE [Concomitant]
     Active Substance: METHOTREXATE
     Route: 058
  394. METHOTREXATE [Concomitant]
     Active Substance: METHOTREXATE
     Route: 048
  395. METHOTREXATE [Concomitant]
     Active Substance: METHOTREXATE
     Route: 048
  396. METHOTREXATE [Concomitant]
     Active Substance: METHOTREXATE
     Route: 048
  397. METHOTREXATE [Concomitant]
     Active Substance: METHOTREXATE
     Route: 048
  398. METHOTREXATE [Concomitant]
     Active Substance: METHOTREXATE
     Route: 048
  399. METHOTREXATE [Concomitant]
     Active Substance: METHOTREXATE
  400. METHOTREXATE [Concomitant]
     Active Substance: METHOTREXATE
     Route: 048
  401. METHOTREXATE [Concomitant]
     Active Substance: METHOTREXATE
     Route: 048
  402. METHOTREXATE [Concomitant]
     Active Substance: METHOTREXATE
     Route: 058
  403. METHOTREXATE [Concomitant]
     Active Substance: METHOTREXATE
     Route: 048
  404. METHOTREXATE [Concomitant]
     Active Substance: METHOTREXATE
     Route: 048
  405. METHOTREXATE [Concomitant]
     Active Substance: METHOTREXATE
     Route: 048
  406. METHOTREXATE [Concomitant]
     Active Substance: METHOTREXATE
  407. METHOTREXATE [Concomitant]
     Active Substance: METHOTREXATE
     Route: 013
  408. METHOTREXATE [Concomitant]
     Active Substance: METHOTREXATE
     Route: 048
  409. METHOTREXATE [Concomitant]
     Active Substance: METHOTREXATE
     Dosage: INTRA-ARTERIAL
     Route: 048
  410. METHOTREXATE [Concomitant]
     Active Substance: METHOTREXATE
     Route: 048
  411. METHOTREXATE [Concomitant]
     Active Substance: METHOTREXATE
     Route: 058
  412. METHOTREXATE [Concomitant]
     Active Substance: METHOTREXATE
     Route: 058
  413. METHOTREXATE [Concomitant]
     Active Substance: METHOTREXATE
     Route: 013
  414. METHOTREXATE [Concomitant]
     Active Substance: METHOTREXATE
     Route: 037
  415. METHOTREXATE [Concomitant]
     Active Substance: METHOTREXATE
     Route: 048
  416. METHOTREXATE [Concomitant]
     Active Substance: METHOTREXATE
  417. METHOTREXATE [Concomitant]
     Active Substance: METHOTREXATE
     Route: 048
  418. MYCOPHENOLATE MOFETIL HYDROCHLORIDE [Concomitant]
     Active Substance: MYCOPHENOLATE MOFETIL HYDROCHLORIDE
     Indication: Rheumatoid arthritis
  419. NAPROXEN SODIUM [Concomitant]
     Active Substance: NAPROXEN SODIUM
     Indication: Rheumatoid arthritis
  420. NAPROXEN SODIUM [Concomitant]
     Active Substance: NAPROXEN SODIUM
  421. NAPROXEN SODIUM [Concomitant]
     Active Substance: NAPROXEN SODIUM
  422. NAPROXEN SODIUM [Concomitant]
     Active Substance: NAPROXEN SODIUM
  423. NEOMYCIN SULFATE [Concomitant]
     Active Substance: NEOMYCIN SULFATE
     Indication: Product used for unknown indication
  424. OXYCODONE HYDROCHLORIDE [Concomitant]
     Active Substance: OXYCODONE HYDROCHLORIDE
     Indication: Product used for unknown indication
     Route: 048
  425. OXYCODONE HYDROCHLORIDE [Concomitant]
     Active Substance: OXYCODONE HYDROCHLORIDE
  426. OXYCODONE HYDROCHLORIDE [Concomitant]
     Active Substance: OXYCODONE HYDROCHLORIDE
     Route: 048
  427. OXYCODONE HYDROCHLORIDE [Concomitant]
     Active Substance: OXYCODONE HYDROCHLORIDE
     Route: 048
  428. OXYCODONE TEREPHTHALATE [Concomitant]
     Active Substance: OXYCODONE TEREPHTHALATE
     Indication: Product used for unknown indication
     Route: 016
  429. OXYCODONE TEREPHTHALATE [Concomitant]
     Active Substance: OXYCODONE TEREPHTHALATE
  430. PANTOPRAZOLE SODIUM [Concomitant]
     Active Substance: PANTOPRAZOLE SODIUM
     Indication: Product used for unknown indication
     Route: 013
  431. PANTOPRAZOLE SODIUM [Concomitant]
     Active Substance: PANTOPRAZOLE SODIUM
  432. PERIOGARD [Concomitant]
     Active Substance: CHLORHEXIDINE GLUCONATE
     Indication: Product used for unknown indication
     Route: 002
  433. PERIOGARD [Concomitant]
     Active Substance: CHLORHEXIDINE GLUCONATE
     Route: 048
  434. PERIOGARD [Concomitant]
     Active Substance: CHLORHEXIDINE GLUCONATE
     Route: 016
  435. PERIOGARD [Concomitant]
     Active Substance: CHLORHEXIDINE GLUCONATE
  436. PHTHALYLSULFATHIAZOLE [Concomitant]
     Active Substance: PHTHALYLSULFATHIAZOLE
     Indication: Rheumatoid arthritis
     Route: 048
  437. PHTHALYLSULFATHIAZOLE [Concomitant]
     Active Substance: PHTHALYLSULFATHIAZOLE
  438. PHTHALYLSULFATHIAZOLE [Concomitant]
     Active Substance: PHTHALYLSULFATHIAZOLE
     Route: 048
  439. PHTHALYLSULFATHIAZOLE [Concomitant]
     Active Substance: PHTHALYLSULFATHIAZOLE
     Route: 048
  440. PHTHALYLSULFATHIAZOLE [Concomitant]
     Active Substance: PHTHALYLSULFATHIAZOLE
     Route: 016
  441. PHTHALYLSULFATHIAZOLE [Concomitant]
     Active Substance: PHTHALYLSULFATHIAZOLE
     Route: 048
  442. PHTHALYLSULFATHIAZOLE [Concomitant]
     Active Substance: PHTHALYLSULFATHIAZOLE
  443. PHTHALYLSULFATHIAZOLE [Concomitant]
     Active Substance: PHTHALYLSULFATHIAZOLE
     Route: 048
  444. PHTHALYLSULFATHIAZOLE [Concomitant]
     Active Substance: PHTHALYLSULFATHIAZOLE
     Route: 048
  445. PHTHALYLSULFATHIAZOLE [Concomitant]
     Active Substance: PHTHALYLSULFATHIAZOLE
     Route: 042
  446. PHTHALYLSULFATHIAZOLE [Concomitant]
     Active Substance: PHTHALYLSULFATHIAZOLE
  447. PHTHALYLSULFATHIAZOLE [Concomitant]
     Active Substance: PHTHALYLSULFATHIAZOLE
     Route: 048
  448. PHTHALYLSULFATHIAZOLE [Concomitant]
     Active Substance: PHTHALYLSULFATHIAZOLE
     Route: 048
  449. PREDNISONE [Concomitant]
     Active Substance: PREDNISONE
     Indication: Rheumatoid arthritis
     Route: 048
  450. PREDNISONE [Concomitant]
     Active Substance: PREDNISONE
     Indication: Psoriatic arthropathy
     Route: 048
  451. PREDNISONE [Concomitant]
     Active Substance: PREDNISONE
     Indication: Condition aggravated
     Route: 048
  452. PREDNISONE [Concomitant]
     Active Substance: PREDNISONE
  453. PREDNISONE [Concomitant]
     Active Substance: PREDNISONE
     Route: 042
  454. PREDNISONE [Concomitant]
     Active Substance: PREDNISONE
  455. PREDNISONE [Concomitant]
     Active Substance: PREDNISONE
     Route: 048
  456. PREDNISONE [Concomitant]
     Active Substance: PREDNISONE
  457. PREDNISONE [Concomitant]
     Active Substance: PREDNISONE
  458. PREDNISONE [Concomitant]
     Active Substance: PREDNISONE
  459. PREGABALIN [Concomitant]
     Active Substance: PREGABALIN
     Indication: Product used for unknown indication
  460. PREGABALIN [Concomitant]
     Active Substance: PREGABALIN
  461. PSEUDOEPHEDRINE HYDROCHLORIDE [Concomitant]
     Active Substance: PSEUDOEPHEDRINE HYDROCHLORIDE
     Indication: Rheumatoid arthritis
  462. PSEUDOEPHEDRINE HYDROCHLORIDE [Concomitant]
     Active Substance: PSEUDOEPHEDRINE HYDROCHLORIDE
  463. PSEUDOEPHEDRINE HYDROCHLORIDE [Concomitant]
     Active Substance: PSEUDOEPHEDRINE HYDROCHLORIDE
  464. PSEUDOEPHEDRINE HYDROCHLORIDE [Concomitant]
     Active Substance: PSEUDOEPHEDRINE HYDROCHLORIDE
  465. CETIRIZINE HYDROCHLORIDE\PSEUDOEPHEDRINE HYDROCHLORIDE [Concomitant]
     Active Substance: CETIRIZINE HYDROCHLORIDE\PSEUDOEPHEDRINE HYDROCHLORIDE
     Indication: Rheumatoid arthritis
  466. CETIRIZINE HYDROCHLORIDE\PSEUDOEPHEDRINE HYDROCHLORIDE [Concomitant]
     Active Substance: CETIRIZINE HYDROCHLORIDE\PSEUDOEPHEDRINE HYDROCHLORIDE
  467. CETIRIZINE HYDROCHLORIDE\PSEUDOEPHEDRINE HYDROCHLORIDE [Concomitant]
     Active Substance: CETIRIZINE HYDROCHLORIDE\PSEUDOEPHEDRINE HYDROCHLORIDE
  468. CETIRIZINE HYDROCHLORIDE\PSEUDOEPHEDRINE HYDROCHLORIDE [Concomitant]
     Active Substance: CETIRIZINE HYDROCHLORIDE\PSEUDOEPHEDRINE HYDROCHLORIDE
  469. CETIRIZINE HYDROCHLORIDE\PSEUDOEPHEDRINE HYDROCHLORIDE [Concomitant]
     Active Substance: CETIRIZINE HYDROCHLORIDE\PSEUDOEPHEDRINE HYDROCHLORIDE
     Route: 048
  470. CETIRIZINE HYDROCHLORIDE\PSEUDOEPHEDRINE HYDROCHLORIDE [Concomitant]
     Active Substance: CETIRIZINE HYDROCHLORIDE\PSEUDOEPHEDRINE HYDROCHLORIDE
  471. CETIRIZINE HYDROCHLORIDE [Concomitant]
     Active Substance: CETIRIZINE HYDROCHLORIDE
     Indication: Rheumatoid arthritis
     Route: 048
  472. CETIRIZINE HYDROCHLORIDE [Concomitant]
     Active Substance: CETIRIZINE HYDROCHLORIDE
  473. CETIRIZINE HYDROCHLORIDE [Concomitant]
     Active Substance: CETIRIZINE HYDROCHLORIDE
  474. RITUXIMAB [Concomitant]
     Active Substance: RITUXIMAB
     Indication: Rheumatoid arthritis
     Route: 042
  475. RITUXIMAB [Concomitant]
     Active Substance: RITUXIMAB
     Route: 058
  476. RITUXIMAB [Concomitant]
     Active Substance: RITUXIMAB
     Route: 042
  477. RITUXIMAB [Concomitant]
     Active Substance: RITUXIMAB
     Route: 042
  478. RITUXIMAB [Concomitant]
     Active Substance: RITUXIMAB
     Route: 058
  479. RITUXIMAB [Concomitant]
     Active Substance: RITUXIMAB
     Route: 042
  480. SULFASALAZINE [Concomitant]
     Active Substance: SULFASALAZINE
     Indication: Rheumatoid arthritis
  481. SULFASALAZINE [Concomitant]
     Active Substance: SULFASALAZINE
     Route: 048
  482. SULFASALAZINE [Concomitant]
     Active Substance: SULFASALAZINE
     Route: 048
  483. SULFASALAZINE [Concomitant]
     Active Substance: SULFASALAZINE
  484. SULFASALAZINE [Concomitant]
     Active Substance: SULFASALAZINE
     Route: 048
  485. SULFASALAZINE [Concomitant]
     Active Substance: SULFASALAZINE
  486. SULFASALAZINE [Concomitant]
     Active Substance: SULFASALAZINE
     Route: 048
  487. SULFASALAZINE [Concomitant]
     Active Substance: SULFASALAZINE
     Route: 048
  488. SULFASALAZINE [Concomitant]
     Active Substance: SULFASALAZINE
  489. SULFASALAZINE [Concomitant]
     Active Substance: SULFASALAZINE
     Route: 048
  490. SULFASALAZINE [Concomitant]
     Active Substance: SULFASALAZINE
     Route: 048
  491. SULFASALAZINE [Concomitant]
     Active Substance: SULFASALAZINE
     Route: 048
  492. SULFASALAZINE [Concomitant]
     Active Substance: SULFASALAZINE
  493. SULFASALAZINE [Concomitant]
     Active Substance: SULFASALAZINE
  494. SULFASALAZINE [Concomitant]
     Active Substance: SULFASALAZINE
  495. SIMPONI [Concomitant]
     Active Substance: GOLIMUMAB
     Indication: Rheumatoid arthritis
     Route: 042
  496. SIMPONI [Concomitant]
     Active Substance: GOLIMUMAB
     Indication: Psoriatic arthropathy
     Route: 052
  497. SIMPONI [Concomitant]
     Active Substance: GOLIMUMAB
     Route: 058
  498. SIMPONI [Concomitant]
     Active Substance: GOLIMUMAB
     Route: 058
  499. SIMPONI [Concomitant]
     Active Substance: GOLIMUMAB
  500. SULFAMETHOXAZOLE [Concomitant]
     Active Substance: SULFAMETHOXAZOLE
     Indication: Rheumatoid arthritis
     Route: 042
  501. SULFAMETHOXAZOLE [Concomitant]
     Active Substance: SULFAMETHOXAZOLE
     Indication: Systemic lupus erythematosus
  502. SULFAMETHOXAZOLE [Concomitant]
     Active Substance: SULFAMETHOXAZOLE
     Indication: Product used for unknown indication
     Route: 048
  503. SULFAMETHOXAZOLE [Concomitant]
     Active Substance: SULFAMETHOXAZOLE
  504. SULFAMETHOXAZOLE [Concomitant]
     Active Substance: SULFAMETHOXAZOLE
     Route: 048
  505. SULFAMETHOXAZOLE [Concomitant]
     Active Substance: SULFAMETHOXAZOLE
     Route: 016
  506. SULFAMETHOXAZOLE [Concomitant]
     Active Substance: SULFAMETHOXAZOLE
     Route: 048
  507. SULFAMETHOXAZOLE [Concomitant]
     Active Substance: SULFAMETHOXAZOLE
  508. SULFAMETHOXAZOLE [Concomitant]
     Active Substance: SULFAMETHOXAZOLE
     Route: 048
  509. SULFAMETHOXAZOLE [Concomitant]
     Active Substance: SULFAMETHOXAZOLE
     Route: 048
  510. SULFAMETHOXAZOLE [Concomitant]
     Active Substance: SULFAMETHOXAZOLE
     Route: 048
  511. SULFAMETHOXAZOLE [Concomitant]
     Active Substance: SULFAMETHOXAZOLE
  512. SULFAMETHOXAZOLE [Concomitant]
     Active Substance: SULFAMETHOXAZOLE
  513. SULFAMETHOXAZOLE [Concomitant]
     Active Substance: SULFAMETHOXAZOLE
     Route: 048
  514. SULFAMETHOXAZOLE [Concomitant]
     Active Substance: SULFAMETHOXAZOLE
     Route: 048
  515. SULFAMETHOXAZOLE [Concomitant]
     Active Substance: SULFAMETHOXAZOLE
  516. SULFAMETHOXAZOLE [Concomitant]
     Active Substance: SULFAMETHOXAZOLE
  517. SULFAMETHOXAZOLE [Concomitant]
     Active Substance: SULFAMETHOXAZOLE
  518. SULFAMETHOXAZOLE [Concomitant]
     Active Substance: SULFAMETHOXAZOLE
  519. SULFAMETHOXAZOLE [Concomitant]
     Active Substance: SULFAMETHOXAZOLE
     Route: 048
  520. SULFAMETHOXAZOLE [Concomitant]
     Active Substance: SULFAMETHOXAZOLE
     Route: 048
  521. SULFAMETHOXAZOLE [Concomitant]
     Active Substance: SULFAMETHOXAZOLE
     Route: 058
  522. SULFAMETHOXAZOLE\TRIMETHOPRIM [Concomitant]
     Active Substance: SULFAMETHOXAZOLE\TRIMETHOPRIM
     Indication: Product used for unknown indication
  523. SULFASALAZINE [Concomitant]
     Active Substance: SULFASALAZINE
     Indication: Rheumatoid arthritis
     Route: 048
  524. SULFASALAZINE [Concomitant]
     Active Substance: SULFASALAZINE
     Indication: Product used for unknown indication
     Route: 048
  525. SULFASALAZINE [Concomitant]
     Active Substance: SULFASALAZINE
     Route: 048
  526. SULFASALAZINE [Concomitant]
     Active Substance: SULFASALAZINE
  527. SULFASALAZINE [Concomitant]
     Active Substance: SULFASALAZINE
     Route: 048
  528. SULFASALAZINE [Concomitant]
     Active Substance: SULFASALAZINE
  529. SULFASALAZINE [Concomitant]
     Active Substance: SULFASALAZINE
     Route: 048
  530. SULFASALAZINE [Concomitant]
     Active Substance: SULFASALAZINE
     Route: 048
  531. SULFASALAZINE [Concomitant]
     Active Substance: SULFASALAZINE
     Route: 048
  532. SULFASALAZINE [Concomitant]
     Active Substance: SULFASALAZINE
     Route: 048
  533. SULFASALAZINE [Concomitant]
     Active Substance: SULFASALAZINE
     Route: 048
  534. SULFASALAZINE [Concomitant]
     Active Substance: SULFASALAZINE
  535. SULFASALAZINE [Concomitant]
     Active Substance: SULFASALAZINE
  536. SULFASALAZINE [Concomitant]
     Active Substance: SULFASALAZINE
     Route: 048
  537. SULFASALAZINE [Concomitant]
     Active Substance: SULFASALAZINE
     Route: 058
  538. SULFASALAZINE [Concomitant]
     Active Substance: SULFASALAZINE
     Route: 058
  539. SULFASALAZINE [Concomitant]
     Active Substance: SULFASALAZINE
     Route: 048
  540. SULFASALAZINE [Concomitant]
     Active Substance: SULFASALAZINE
     Route: 048
  541. SULFASALAZINE [Concomitant]
     Active Substance: SULFASALAZINE
     Route: 048
  542. SULFASALAZINE [Concomitant]
     Active Substance: SULFASALAZINE
  543. SULFASALAZINE [Concomitant]
     Active Substance: SULFASALAZINE
  544. SULFASALAZINE [Concomitant]
     Active Substance: SULFASALAZINE
     Route: 048
  545. SULFASALAZINE [Concomitant]
     Active Substance: SULFASALAZINE
     Route: 048
  546. SULFASALAZINE [Concomitant]
     Active Substance: SULFASALAZINE
  547. SULFASALAZINE [Concomitant]
     Active Substance: SULFASALAZINE
  548. SULFASALAZINE [Concomitant]
     Active Substance: SULFASALAZINE
     Route: 048
  549. SULFASALAZINE [Concomitant]
     Active Substance: SULFASALAZINE
  550. SULFASALAZINE [Concomitant]
     Active Substance: SULFASALAZINE
  551. SULFASALAZINE [Concomitant]
     Active Substance: SULFASALAZINE
     Route: 048
  552. SULFASALAZINE [Concomitant]
     Active Substance: SULFASALAZINE
     Route: 048
  553. SULFASALAZINE [Concomitant]
     Active Substance: SULFASALAZINE
     Route: 048
  554. SULFASALAZINE [Concomitant]
     Active Substance: SULFASALAZINE
     Route: 058
  555. SULFASALAZINE [Concomitant]
     Active Substance: SULFASALAZINE
  556. TOCILIZUMAB [Concomitant]
     Active Substance: TOCILIZUMAB
     Indication: Rheumatoid arthritis
     Route: 058
  557. TOCILIZUMAB [Concomitant]
     Active Substance: TOCILIZUMAB
  558. TOFACITINIB CITRATE [Concomitant]
     Active Substance: TOFACITINIB CITRATE
     Indication: Rheumatoid arthritis
  559. TOFACITINIB CITRATE [Concomitant]
     Active Substance: TOFACITINIB CITRATE
     Indication: Psoriatic arthropathy
     Route: 048
  560. TOFACITINIB CITRATE [Concomitant]
     Active Substance: TOFACITINIB CITRATE
     Indication: Product used for unknown indication
     Route: 058
  561. TOFACITINIB CITRATE [Concomitant]
     Active Substance: TOFACITINIB CITRATE
  562. TOFACITINIB CITRATE [Concomitant]
     Active Substance: TOFACITINIB CITRATE
  563. TOFACITINIB CITRATE [Concomitant]
     Active Substance: TOFACITINIB CITRATE
     Route: 048
  564. TOFACITINIB CITRATE [Concomitant]
     Active Substance: TOFACITINIB CITRATE
  565. TOFACITINIB CITRATE [Concomitant]
     Active Substance: TOFACITINIB CITRATE
     Route: 048
  566. TOFACITINIB CITRATE [Concomitant]
     Active Substance: TOFACITINIB CITRATE
     Route: 058
  567. TOFACITINIB CITRATE [Concomitant]
     Active Substance: TOFACITINIB CITRATE
  568. TOFACITINIB CITRATE [Concomitant]
     Active Substance: TOFACITINIB CITRATE
     Route: 048
  569. TRAMADOL HYDROCHLORIDE [Concomitant]
     Active Substance: TRAMADOL HYDROCHLORIDE
     Indication: Product used for unknown indication
  570. TUMS [Concomitant]
     Active Substance: CALCIUM CARBONATE
     Indication: Product used for unknown indication
  571. USTEKINUMAB [Concomitant]
     Active Substance: USTEKINUMAB
     Indication: Psoriatic arthropathy
     Route: 058
  572. USTEKINUMAB [Concomitant]
     Active Substance: USTEKINUMAB
  573. USTEKINUMAB [Concomitant]
     Active Substance: USTEKINUMAB
     Route: 058
  574. USTEKINUMAB [Concomitant]
     Active Substance: USTEKINUMAB
  575. USTEKINUMAB [Concomitant]
     Active Substance: USTEKINUMAB
     Route: 042
  576. USTEKINUMAB [Concomitant]
     Active Substance: USTEKINUMAB
     Route: 058
  577. USTEKINUMAB [Concomitant]
     Active Substance: USTEKINUMAB
     Route: 058
  578. VITAMIN C [Concomitant]
     Active Substance: ASCORBIC ACID
     Indication: Product used for unknown indication
     Route: 016
  579. VITAMIN C [Concomitant]
     Active Substance: ASCORBIC ACID
     Route: 016
  580. VITAMIN C [Concomitant]
     Active Substance: ASCORBIC ACID
  581. VITAMIN C [Concomitant]
     Active Substance: ASCORBIC ACID
  582. CHOLECALCIFEROL [Concomitant]
     Active Substance: CHOLECALCIFEROL
     Indication: Product used for unknown indication
  583. CHOLECALCIFEROL [Concomitant]
     Active Substance: CHOLECALCIFEROL
  584. PREDNISONE [Concomitant]
     Active Substance: PREDNISONE
     Indication: Rheumatoid arthritis
     Route: 048
  585. LYRICA [Concomitant]
     Active Substance: PREGABALIN
     Indication: Product used for unknown indication
  586. NEOMYCIN [Concomitant]
     Active Substance: NEOMYCIN
     Indication: Product used for unknown indication
  587. OTEZLA [Concomitant]
     Active Substance: APREMILAST
     Indication: Product used for unknown indication
     Route: 048
  588. OTEZLA [Concomitant]
     Active Substance: APREMILAST
     Route: 048
  589. PANTOPRAZOLE SODIUM ANHYDROUS [Concomitant]
     Active Substance: PANTOPRAZOLE SODIUM ANHYDROUS
     Indication: Product used for unknown indication
  590. PERCOCET [Concomitant]
     Active Substance: ACETAMINOPHEN\OXYCODONE HYDROCHLORIDE
     Indication: Product used for unknown indication
  591. REMICADE [Concomitant]
     Active Substance: INFLIXIMAB
     Indication: Rheumatoid arthritis
  592. REMICADE [Concomitant]
     Active Substance: INFLIXIMAB
     Route: 042
  593. REMICADE [Concomitant]
     Active Substance: INFLIXIMAB
  594. REMICADE [Concomitant]
     Active Substance: INFLIXIMAB
     Route: 042
  595. REMICADE [Concomitant]
     Active Substance: INFLIXIMAB
  596. STELARA [Concomitant]
     Active Substance: USTEKINUMAB
     Indication: Product used for unknown indication
     Route: 042
  597. STELARA [Concomitant]
     Active Substance: USTEKINUMAB
     Route: 058
  598. STELARA [Concomitant]
     Active Substance: USTEKINUMAB
     Route: 058
  599. STELARA [Concomitant]
     Active Substance: USTEKINUMAB
  600. STELARA [Concomitant]
     Active Substance: USTEKINUMAB
     Route: 058
  601. STELARA [Concomitant]
     Active Substance: USTEKINUMAB
     Route: 058
  602. STELARA [Concomitant]
     Active Substance: USTEKINUMAB
     Route: 058
  603. STELARA [Concomitant]
     Active Substance: USTEKINUMAB
     Route: 058
  604. STELARA [Concomitant]
     Active Substance: USTEKINUMAB
     Route: 042
  605. TOFACITINIB [Concomitant]
     Active Substance: TOFACITINIB
     Indication: Product used for unknown indication
  606. TOFACITINIB [Concomitant]
     Active Substance: TOFACITINIB
     Route: 048
  607. DICLOFENAC DIETHYLAMINE [Concomitant]
     Active Substance: DICLOFENAC DIETHYLAMINE
     Indication: Product used for unknown indication
  608. DICLOFENAC DIETHYLAMINE [Concomitant]
     Active Substance: DICLOFENAC DIETHYLAMINE
     Route: 048
  609. DICLOFENAC DIETHYLAMINE [Concomitant]
     Active Substance: DICLOFENAC DIETHYLAMINE
  610. DICLOFENAC DIETHYLAMINE [Concomitant]
     Active Substance: DICLOFENAC DIETHYLAMINE
  611. XELJANZ [Concomitant]
     Active Substance: TOFACITINIB CITRATE
     Indication: Rheumatoid arthritis
     Route: 048
  612. XELJANZ [Concomitant]
     Active Substance: TOFACITINIB CITRATE
  613. CALCIUM CARBONATE [Concomitant]
     Active Substance: CALCIUM CARBONATE
     Indication: Product used for unknown indication
  614. CALCIUM CARBONATE [Concomitant]
     Active Substance: CALCIUM CARBONATE
  615. CELEBREX [Concomitant]
     Active Substance: CELECOXIB
     Indication: Product used for unknown indication
  616. CELEBREX [Concomitant]
     Active Substance: CELECOXIB
     Route: 048
  617. CHLORHEXIDINE [Concomitant]
     Active Substance: CHLORHEXIDINE
     Indication: Product used for unknown indication
     Route: 002
  618. CHLORHEXIDINE [Concomitant]
     Active Substance: CHLORHEXIDINE
     Route: 061
  619. CHLORHEXIDINE [Concomitant]
     Active Substance: CHLORHEXIDINE
     Route: 048
  620. CHLORHEXIDINE [Concomitant]
     Active Substance: CHLORHEXIDINE
  621. HYDROCORTISONE [Concomitant]
     Active Substance: HYDROCORTISONE
     Indication: Product used for unknown indication
  622. HYDROCORTISONE [Concomitant]
     Active Substance: HYDROCORTISONE
     Route: 003
  623. HYDROCORTISONE [Concomitant]
     Active Substance: HYDROCORTISONE
     Route: 048
  624. HYDROCORTISONE [Concomitant]
     Active Substance: HYDROCORTISONE
     Route: 058
  625. HYDROCORTISONE [Concomitant]
     Active Substance: HYDROCORTISONE
  626. HYDROCORTISONE [Concomitant]
     Active Substance: HYDROCORTISONE
     Route: 061
  627. HYDROXYCHLOROQUINE [Concomitant]
     Active Substance: HYDROXYCHLOROQUINE
     Indication: Product used for unknown indication
  628. HYDROXYCHLOROQUINE [Concomitant]
     Active Substance: HYDROXYCHLOROQUINE
  629. HYDROXYCHLOROQUINE [Concomitant]
     Active Substance: HYDROXYCHLOROQUINE
     Route: 048
  630. HYDROXYCHLOROQUINE [Concomitant]
     Active Substance: HYDROXYCHLOROQUINE
     Route: 048
  631. HYDROXYCHLOROQUINE [Concomitant]
     Active Substance: HYDROXYCHLOROQUINE
     Route: 048
  632. HYDROXYCHLOROQUINE [Concomitant]
     Active Substance: HYDROXYCHLOROQUINE
  633. HYDROXYCHLOROQUINE [Concomitant]
     Active Substance: HYDROXYCHLOROQUINE
  634. HYDROXYCHLOROQUINE [Concomitant]
     Active Substance: HYDROXYCHLOROQUINE
     Route: 058
  635. HYDROXYCHLOROQUINE [Concomitant]
     Active Substance: HYDROXYCHLOROQUINE
     Route: 058
  636. HYDROXYCHLOROQUINE [Concomitant]
     Active Substance: HYDROXYCHLOROQUINE
     Route: 048
  637. OXYCODONE [Concomitant]
     Active Substance: OXYCODONE
     Indication: Product used for unknown indication
  638. CETIRIZINE HYDROCHLORIDE [Concomitant]
     Active Substance: CETIRIZINE HYDROCHLORIDE
     Indication: Rheumatoid arthritis
  639. CETIRIZINE HYDROCHLORIDE [Concomitant]
     Active Substance: CETIRIZINE HYDROCHLORIDE
     Route: 048
  640. ACETAMINOPHEN AND CODEINE [Concomitant]
     Active Substance: ACETAMINOPHEN\CODEINE PHOSPHATE
     Indication: Pyrexia
  641. ALENDRONATE SODIUM [Concomitant]
     Active Substance: ALENDRONATE SODIUM
     Indication: Rheumatoid arthritis
     Route: 048
  642. ALENDRONATE SODIUM [Concomitant]
     Active Substance: ALENDRONATE SODIUM
     Indication: Product used for unknown indication
  643. ALENDRONATE SODIUM [Concomitant]
     Active Substance: ALENDRONATE SODIUM
  644. ALENDRONATE SODIUM [Concomitant]
     Active Substance: ALENDRONATE SODIUM
     Route: 048
  645. ALENDRONATE SODIUM [Concomitant]
     Active Substance: ALENDRONATE SODIUM
     Route: 048
  646. ALENDRONATE SODIUM [Concomitant]
     Active Substance: ALENDRONATE SODIUM
     Route: 058
  647. ALENDRONATE SODIUM [Concomitant]
     Active Substance: ALENDRONATE SODIUM
  648. ALENDRONATE SODIUM [Concomitant]
     Active Substance: ALENDRONATE SODIUM
     Route: 048
  649. ASACOL [Concomitant]
     Active Substance: MESALAMINE
     Indication: Rheumatoid arthritis
  650. BORAGE OIL [Concomitant]
     Active Substance: BORAGE OIL
     Indication: Rheumatoid arthritis
  651. CALCIUM [Concomitant]
     Active Substance: CALCIUM
     Indication: Product used for unknown indication
     Route: 048
  652. CALCIUM [Concomitant]
     Active Substance: CALCIUM
     Route: 048
  653. CALCIUM GLUBIONATE [Concomitant]
     Active Substance: CALCIUM GLUBIONATE
     Indication: Product used for unknown indication
  654. CALCIUM GLUBIONATE [Concomitant]
     Active Substance: CALCIUM GLUBIONATE
     Route: 016
  655. CALCIUM GLUBIONATE [Concomitant]
     Active Substance: CALCIUM GLUBIONATE
     Indication: Product used for unknown indication
  656. CALCIUM GLUBIONATE [Concomitant]
     Active Substance: CALCIUM GLUBIONATE
     Route: 016
  657. CETIRIZINE [Concomitant]
     Active Substance: CETIRIZINE HYDROCHLORIDE
     Indication: Systemic lupus erythematosus
  658. CETIRIZINE [Concomitant]
     Active Substance: CETIRIZINE HYDROCHLORIDE
     Indication: Rheumatoid arthritis
  659. CETIRIZINE [Concomitant]
     Active Substance: CETIRIZINE HYDROCHLORIDE
  660. CETIRIZINE [Concomitant]
     Active Substance: CETIRIZINE HYDROCHLORIDE
  661. CETIRIZINE [Concomitant]
     Active Substance: CETIRIZINE HYDROCHLORIDE
  662. CETIRIZINE [Concomitant]
     Active Substance: CETIRIZINE HYDROCHLORIDE
     Route: 048
  663. CETIRIZINE [Concomitant]
     Active Substance: CETIRIZINE HYDROCHLORIDE
     Route: 048
  664. CETIRIZINE [Concomitant]
     Active Substance: CETIRIZINE HYDROCHLORIDE
     Route: 048
  665. CETIRIZINE [Concomitant]
     Active Substance: CETIRIZINE HYDROCHLORIDE
  666. HYDROCORTISONE [Concomitant]
     Active Substance: HYDROCORTISONE
     Indication: Product used for unknown indication
  667. HYDROCORTISONE [Concomitant]
     Active Substance: HYDROCORTISONE
     Indication: Rheumatoid arthritis
     Route: 048
  668. HYDROCORTISONE [Concomitant]
     Active Substance: HYDROCORTISONE
     Route: 058
  669. HYDROCORTISONE [Concomitant]
     Active Substance: HYDROCORTISONE
     Route: 061
  670. HYDROCORTISONE [Concomitant]
     Active Substance: HYDROCORTISONE
     Route: 058
  671. HYDROCORTISONE [Concomitant]
     Active Substance: HYDROCORTISONE
     Route: 003
  672. DICLOFENAC [Concomitant]
     Active Substance: DICLOFENAC
     Indication: Product used for unknown indication
     Route: 047
  673. DICLOFENAC [Concomitant]
     Active Substance: DICLOFENAC
     Route: 047
  674. DICLOFENAC [Concomitant]
     Active Substance: DICLOFENAC
  675. DICLOFENAC [Concomitant]
     Active Substance: DICLOFENAC
  676. VOLTAREN [Concomitant]
     Active Substance: DICLOFENAC SODIUM
     Indication: Product used for unknown indication
  677. VITAMIN B12 [Concomitant]
     Active Substance: CYANOCOBALAMIN
     Indication: Product used for unknown indication
  678. HYDROCORTISONE ACETATE [Concomitant]
     Active Substance: HYDROCORTISONE ACETATE
     Indication: Rheumatoid arthritis
  679. HYDROCORTISONE ACETATE [Concomitant]
     Active Substance: HYDROCORTISONE ACETATE
     Indication: Psoriatic arthropathy
  680. HYDROCORTISONE ACETATE [Concomitant]
     Active Substance: HYDROCORTISONE ACETATE
     Indication: Product used for unknown indication
  681. DILTIAZEM [Concomitant]
     Active Substance: DILTIAZEM
     Indication: Rheumatoid arthritis
  682. DILTIAZEM [Concomitant]
     Active Substance: DILTIAZEM
     Indication: Psoriatic arthropathy
     Route: 048
  683. DILTIAZEM [Concomitant]
     Active Substance: DILTIAZEM
     Indication: Product used for unknown indication
  684. DOXYCYCLINE HYDROCHLORIDE [Concomitant]
     Active Substance: DOXYCYCLINE HYDROCHLORIDE
     Indication: Rheumatoid arthritis
  685. DOXYCYCLINE HYDROCHLORIDE [Concomitant]
     Active Substance: DOXYCYCLINE HYDROCHLORIDE
     Indication: Psoriatic arthropathy
  686. DOXYCYCLINE HYDROCHLORIDE [Concomitant]
     Active Substance: DOXYCYCLINE HYDROCHLORIDE
     Indication: Product used for unknown indication
  687. EMEND [Concomitant]
     Active Substance: APREPITANT
     Indication: Rheumatoid arthritis
     Route: 003
  688. EMEND [Concomitant]
     Active Substance: APREPITANT
     Indication: Psoriatic arthropathy
  689. EMEND [Concomitant]
     Active Substance: APREPITANT
     Indication: Product used for unknown indication
  690. EMEND [Concomitant]
     Active Substance: APREPITANT
     Indication: Rheumatoid arthritis
  691. EMEND [Concomitant]
     Active Substance: APREPITANT
     Indication: Psoriatic arthropathy
     Route: 042
  692. EMEND [Concomitant]
     Active Substance: APREPITANT
     Indication: Product used for unknown indication
  693. HYRIMOZ [Concomitant]
     Active Substance: ADALIMUMAB-ADAZ
     Indication: Rheumatoid arthritis
     Route: 058
  694. HYRIMOZ [Concomitant]
     Active Substance: ADALIMUMAB-ADAZ
     Indication: Psoriatic arthropathy
     Route: 058
  695. HYRIMOZ [Concomitant]
     Active Substance: ADALIMUMAB-ADAZ
     Indication: Product used for unknown indication
     Route: 048
  696. HYRIMOZ [Concomitant]
     Active Substance: ADALIMUMAB-ADAZ
     Route: 042
  697. HYRIMOZ [Concomitant]
     Active Substance: ADALIMUMAB-ADAZ
  698. QUETIAPINE FUMARATE [Concomitant]
     Active Substance: QUETIAPINE FUMARATE
     Indication: Rheumatoid arthritis
     Route: 048
  699. QUETIAPINE FUMARATE [Concomitant]
     Active Substance: QUETIAPINE FUMARATE
     Indication: Psoriatic arthropathy
     Route: 003
  700. QUETIAPINE FUMARATE [Concomitant]
     Active Substance: QUETIAPINE FUMARATE
     Indication: Product used for unknown indication
  701. APREMILAST [Concomitant]
     Active Substance: APREMILAST
     Indication: Product used for unknown indication
     Route: 048
  702. APREMILAST [Concomitant]
     Active Substance: APREMILAST
  703. APREMILAST [Concomitant]
     Active Substance: APREMILAST
  704. APREMILAST [Concomitant]
     Active Substance: APREMILAST
  705. APREMILAST [Concomitant]
     Active Substance: APREMILAST
     Route: 042
  706. APREMILAST [Concomitant]
     Active Substance: APREMILAST
     Route: 048
  707. PREGABALIN [Concomitant]
     Active Substance: PREGABALIN
     Indication: Product used for unknown indication
     Route: 058
  708. PREGABALIN [Concomitant]
     Active Substance: PREGABALIN
     Route: 048
  709. PREGABALIN [Concomitant]
     Active Substance: PREGABALIN
  710. MOXIFLOXACIN HYDROCHLORIDE [Concomitant]
     Active Substance: MOXIFLOXACIN HYDROCHLORIDE
     Indication: Product used for unknown indication
     Route: 048
  711. MOXIFLOXACIN HYDROCHLORIDE [Concomitant]
     Active Substance: MOXIFLOXACIN HYDROCHLORIDE
  712. LEFLUNOMIDE [Concomitant]
     Active Substance: LEFLUNOMIDE
     Indication: Product used for unknown indication
  713. LEFLUNOMIDE [Concomitant]
     Active Substance: LEFLUNOMIDE
     Route: 048
  714. LEFLUNOMIDE [Concomitant]
     Active Substance: LEFLUNOMIDE
     Route: 048
  715. LEFLUNOMIDE [Concomitant]
     Active Substance: LEFLUNOMIDE
  716. HYDROCORTISONE [Concomitant]
     Active Substance: HYDROCORTISONE
     Indication: Product used for unknown indication
  717. HYDROCORTISONE [Concomitant]
     Active Substance: HYDROCORTISONE
     Route: 003
  718. HYDROCORTISONE [Concomitant]
     Active Substance: HYDROCORTISONE
     Route: 058
  719. HYDROCORTISONE [Concomitant]
     Active Substance: HYDROCORTISONE
  720. HYDROCORTISONE [Concomitant]
     Active Substance: HYDROCORTISONE
     Route: 048
  721. HYDROCORTISONE [Concomitant]
     Active Substance: HYDROCORTISONE
     Route: 061
  722. DILTIAZEM [Concomitant]
     Active Substance: DILTIAZEM
     Indication: Product used for unknown indication
  723. DILTIAZEM [Concomitant]
     Active Substance: DILTIAZEM
     Route: 042
  724. DILTIAZEM [Concomitant]
     Active Substance: DILTIAZEM

REACTIONS (20)
  - Drug ineffective [Unknown]
  - Medication error [Unknown]
  - Prescribed underdose [Unknown]
  - Sleep disorder due to general medical condition, insomnia type [Unknown]
  - Therapy non-responder [Unknown]
  - Treatment failure [Unknown]
  - Urticaria [Unknown]
  - Vomiting [Unknown]
  - Weight increased [Unknown]
  - Wheezing [Unknown]
  - Wound [Unknown]
  - Adverse event [Unknown]
  - Hospitalisation [Unknown]
  - Off label use [Unknown]
  - Alopecia [Unknown]
  - Blister [Unknown]
  - Drug intolerance [Unknown]
  - Malaise [Unknown]
  - Musculoskeletal stiffness [Unknown]
  - Product use in unapproved indication [Unknown]
